FAERS Safety Report 19146266 (Version 2)
Quarter: 2021Q2

REPORT INFORMATION
  Report Type: Report from Study
  Country: CN (occurrence: CN)
  Receive Date: 20210416
  Receipt Date: 20210426
  Transmission Date: 20210717
  Serious: Yes (Hospitalization)
  Sender: FDA-Public Use
  Company Number: CN-EISAI MEDICAL RESEARCH-EC-2021-091144

PATIENT
  Age: 37 Year
  Sex: Female
  Weight: 62 kg

DRUGS (11)
  1. PEMBROLIZUMAB. [Suspect]
     Active Substance: PEMBROLIZUMAB
     Indication: NON-SMALL CELL LUNG CANCER
     Route: 041
     Dates: start: 20200922, end: 20200922
  2. PEMBROLIZUMAB. [Suspect]
     Active Substance: PEMBROLIZUMAB
     Route: 041
     Dates: start: 20210205
  3. CARBOPLATIN. [Concomitant]
     Active Substance: CARBOPLATIN
     Dates: start: 20200922, end: 20201125
  4. PEMETREXED. [Suspect]
     Active Substance: PEMETREXED
     Indication: NON-SMALL CELL LUNG CANCER
     Route: 042
     Dates: start: 20200922, end: 20200922
  5. PEMETREXED. [Suspect]
     Active Substance: PEMETREXED
     Route: 042
     Dates: start: 20210205
  6. PEMBROLIZUMAB. [Suspect]
     Active Substance: PEMBROLIZUMAB
     Route: 041
     Dates: start: 20201013, end: 20201216
  7. PEMETREXED. [Suspect]
     Active Substance: PEMETREXED
     Route: 042
     Dates: start: 20201013, end: 20201216
  8. PEMBROLIZUMAB. [Suspect]
     Active Substance: PEMBROLIZUMAB
     Route: 041
     Dates: start: 20210107, end: 20210107
  9. MINERALS (UNSPECIFIED) (+) VITAMINS (UNSPECIFIED) [Concomitant]
     Active Substance: MINERALS\VITAMINS
     Dates: start: 20200921
  10. LENVATINIB [Suspect]
     Active Substance: LENVATINIB
     Indication: NON-SMALL CELL LUNG CANCER
     Route: 048
     Dates: start: 20200922
  11. PEMETREXED. [Suspect]
     Active Substance: PEMETREXED
     Route: 042
     Dates: start: 20210107, end: 20210107

REACTIONS (1)
  - Aspartate aminotransferase increased [Recovered/Resolved]

NARRATIVE: CASE EVENT DATE: 20201010
